FAERS Safety Report 4758641-8 (Version None)
Quarter: 2005Q3

REPORT INFORMATION
  Report Type: 
  Country: None (occurrence: None)
  Receive Date: 20050826
  Receipt Date: 20050816
  Transmission Date: 20060218
  Serious: Yes (Other)
  Sender: FDA-Public Use
  Company Number: 2005116804

PATIENT
  Age: 65 Year
  Sex: Male

DRUGS (4)
  1. SORTIS (ATORVASTATIN) [Suspect]
     Indication: HYPERLIPIDAEMIA
     Dosage: 20 MG, ORAL
     Route: 048
     Dates: start: 20020101
  2. BELOC (METOPROLOL TARTRATE) [Concomitant]
  3. ACETYLSALICYLIC ACID SRT [Concomitant]
  4. INSULIN PROTAPHAN HUMAN (INSULIN HUMAN INJECTION, ISOPHANE) [Concomitant]

REACTIONS (3)
  - BLINDNESS TRANSIENT [None]
  - DIABETES MELLITUS INADEQUATE CONTROL [None]
  - VISION BLURRED [None]
